FAERS Safety Report 9126802 (Version 1)
Quarter: 2013Q1

REPORT INFORMATION
  Report Type: Spontaneous
  Country: US (occurrence: US)
  Receive Date: 20130122
  Receipt Date: 20130122
  Transmission Date: 20140127
  Serious: No
  Sender: FDA-Public Use
  Company Number: US-PFIZER INC-2013024487

PATIENT
  Age: 64 Year
  Sex: Female
  Weight: 71.2 kg

DRUGS (1)
  1. ADVIL [Suspect]
     Indication: SINUSITIS
     Dosage: UNK
     Route: 048

REACTIONS (2)
  - Drug ineffective for unapproved indication [Unknown]
  - Off label use [Unknown]
